FAERS Safety Report 5937058-4 (Version None)
Quarter: 2008Q4

REPORT INFORMATION
  Report Type: 
  Country: None (occurrence: None)
  Receive Date: 20081031
  Receipt Date: 20081023
  Transmission Date: 20090506
  Serious: Yes (Other)
  Sender: FDA-Public Use
  Company Number: DE-BAYER-200829188GPV

PATIENT
  Age: 48 Year
  Sex: Female

DRUGS (1)
  1. AVELOX [Suspect]
     Indication: UPPER RESPIRATORY TRACT INFECTION
     Dosage: TOTAL DAILY DOSE: 400 MG  UNIT DOSE: 400 MG
     Route: 048
     Dates: start: 20081017

REACTIONS (5)
  - BRONCHOSPASM [None]
  - COUGH [None]
  - DYSPNOEA [None]
  - HYPOAESTHESIA ORAL [None]
  - PRURITUS [None]
